FAERS Safety Report 5840423-7 (Version None)
Quarter: 2008Q3

REPORT INFORMATION
  Report Type: 
  Country: None (occurrence: None)
  Receive Date: 20080807
  Receipt Date: 20080807
  Transmission Date: 20090109
  Serious: Yes (Hospitalization)
  Sender: FDA-Public Use
  Company Number: None

PATIENT
  Sex: Female
  Weight: 92 kg

DRUGS (1)
  1. TAXOL [Suspect]
     Dosage: 270 MG

REACTIONS (4)
  - ASTHENIA [None]
  - BLOOD GLUCOSE INCREASED [None]
  - SPEECH DISORDER [None]
  - WHITE BLOOD CELL COUNT INCREASED [None]
